FAERS Safety Report 8483551-2 (Version None)
Quarter: 2012Q3

REPORT INFORMATION
  Report Type: 
  Country: None (occurrence: None)
  Receive Date: 20120702
  Receipt Date: 20120629
  Transmission Date: 20120928
  Serious: Yes (Other)
  Sender: FDA-Public Use
  Company Number: US-MERCK-1206USA05462

PATIENT
  Sex: Female

DRUGS (1)
  1. FOSAMAX [Suspect]
     Route: 048

REACTIONS (8)
  - BONE DISORDER [None]
  - ARTHRITIS [None]
  - THYROID DISORDER [None]
  - DRUG INEFFECTIVE [None]
  - OSTEOPOROSIS [None]
  - MIGRAINE [None]
  - GASTROOESOPHAGEAL REFLUX DISEASE [None]
  - OESOPHAGEAL DISORDER [None]
